FAERS Safety Report 7575063-5 (Version None)
Quarter: 2011Q2

REPORT INFORMATION
  Report Type: 
  Country: None (occurrence: None)
  Receive Date: 20110627
  Receipt Date: 20110620
  Transmission Date: 20111010
  Serious: Yes (Hospitalization)
  Sender: FDA-Public Use
  Company Number: US-B.I. PHARMACEUTICALS,INC./RIDGEFIELD-2011-BP-16093BP

PATIENT
  Age: 80 Year
  Sex: Female

DRUGS (5)
  1. MULTI-VITAMINS [Concomitant]
     Indication: VITAMIN SUPPLEMENTATION
  2. DIGOXIN [Concomitant]
     Indication: ATRIAL FIBRILLATION
  3. LEVOTHYROXINE SODIUM [Concomitant]
     Indication: THYROID DISORDER
  4. HIPREX [Concomitant]
     Indication: VULVOVAGINAL DISCOMFORT
  5. PRADAXA [Suspect]
     Indication: ATRIAL FIBRILLATION
     Dosage: 300 MG
     Route: 048
     Dates: start: 20101201, end: 20110618

REACTIONS (4)
  - FALL [None]
  - GAIT DISTURBANCE [None]
  - VERTIGO [None]
  - DIZZINESS [None]
